FAERS Safety Report 21621474 (Version 1)
Quarter: 2022Q4

REPORT INFORMATION
  Report Type: Spontaneous
  Country: AT (occurrence: AT)
  Receive Date: 20221121
  Receipt Date: 20221121
  Transmission Date: 20230112
  Serious: Yes (Other)
  Sender: FDA-Public Use
  Company Number: AT-PFIZER INC-PV202200105423

PATIENT
  Age: 7 Year
  Sex: Female

DRUGS (5)
  1. CARBOPLATIN [Suspect]
     Active Substance: CARBOPLATIN
     Dosage: 300 MG/M2
  2. METHOTREXATE SODIUM [Suspect]
     Active Substance: METHOTREXATE SODIUM
     Dosage: 30G/M2
  3. VINCRISTINE [Suspect]
     Active Substance: VINCRISTINE
     Dosage: 16.5 MG/M2
  4. ETOPOSIDE [Suspect]
     Active Substance: ETOPOSIDE
     Dosage: 2250 MG/M2
  5. CYCLOPHOSPHAMIDE [Suspect]
     Active Substance: CYCLOPHOSPHAMIDE
     Dosage: 12G/M2

REACTIONS (1)
  - Renal impairment [Unknown]
